FAERS Safety Report 13532398 (Version 1)
Quarter: 2017Q2

REPORT INFORMATION
  Report Type: Spontaneous
  Country: US (occurrence: US)
  Receive Date: 20170510
  Receipt Date: 20170510
  Transmission Date: 20170830
  Serious: No
  Sender: FDA-Public Use
  Company Number: US-009507513-1704USA005907

PATIENT
  Age: 6 Decade
  Sex: Female

DRUGS (2)
  1. ZEPATIER [Suspect]
     Active Substance: ELBASVIR\GRAZOPREVIR
     Indication: HEPATITIS C
     Dosage: UNK
     Route: 048
  2. ZEPATIER [Suspect]
     Active Substance: ELBASVIR\GRAZOPREVIR
     Dosage: UNK
     Route: 048

REACTIONS (4)
  - Inappropriate schedule of drug administration [Unknown]
  - Psychotic disorder [Unknown]
  - Fluid intake reduced [Unknown]
  - Aggression [Unknown]
